FAERS Safety Report 7815155-6 (Version None)
Quarter: 2011Q4

REPORT INFORMATION
  Report Type: 
  Country: None (occurrence: None)
  Receive Date: 20111014
  Receipt Date: 20111005
  Transmission Date: 20120403
  Serious: Yes (Hospitalization)
  Sender: FDA-Public Use
  Company Number: FR-PERRIGO-11FR008436

PATIENT
  Age: 88 Year
  Sex: Female

DRUGS (3)
  1. VENLAFAXINE HYDROCHLORIDE [Suspect]
     Indication: DEPRESSION
     Dosage: 37.5 MG, QD
     Route: 065
     Dates: start: 20100113, end: 20100128
  2. CLINDAMYCIN PALMITATE HYDROCHLORIDE [Suspect]
     Indication: BACTERAEMIA
     Dosage: UNK
     Route: 048
     Dates: start: 20100103, end: 20100201
  3. VENLAFAXINE HYDROCHLORIDE [Suspect]
     Dosage: 75 MG, QD
     Route: 065
     Dates: start: 20100129

REACTIONS (4)
  - PYREXIA [None]
  - AGRANULOCYTOSIS [None]
  - STAPHYLOCOCCAL BACTERAEMIA [None]
  - CHILLS [None]
